FAERS Safety Report 10372897 (Version 1)
Quarter: 2014Q3

REPORT INFORMATION
  Report Type: Spontaneous
  Country: US (occurrence: US)
  Receive Date: 20140808
  Receipt Date: 20140808
  Transmission Date: 20150326
  Serious: No
  Sender: FDA-Public Use
  Company Number: US-BRISTOL-MYERS SQUIBB COMPANY-19609627

PATIENT
  Age: 83 Year
  Sex: Female
  Weight: 70.29 kg

DRUGS (10)
  1. LEVOTHYROXIN [Concomitant]
     Active Substance: LEVOTHYROXINE
  2. LIPITOR [Concomitant]
     Active Substance: ATORVASTATIN CALCIUM
  3. HYDROCHLOROTHIAZIDE. [Concomitant]
     Active Substance: HYDROCHLOROTHIAZIDE
  4. LISINOPRIL. [Concomitant]
     Active Substance: LISINOPRIL
  5. PREVACID [Concomitant]
     Active Substance: LANSOPRAZOLE
  6. BABY ASPIRIN [Concomitant]
     Active Substance: ASPIRIN
  7. ALLEGRA [Concomitant]
     Active Substance: FEXOFENADINE HYDROCHLORIDE
  8. SPRYCEL [Suspect]
     Active Substance: DASATINIB
     Indication: LEUKAEMIA
     Dosage: ALL ODD DAYS INCLUDING 31ST
     Route: 048
     Dates: start: 201302
  9. METOPROLOL [Concomitant]
     Active Substance: METOPROLOL
  10. XANAX [Concomitant]
     Active Substance: ALPRAZOLAM

REACTIONS (1)
  - Cough [Unknown]

NARRATIVE: CASE EVENT DATE: 2013
